FAERS Safety Report 8902564 (Version 1)
Quarter: 2012Q4

REPORT INFORMATION
  Report Type: 
  Country: ZA (occurrence: ZA)
  Receive Date: 20121112
  Receipt Date: 20121112
  Transmission Date: 20130627
  Serious: Yes (Other)
  Sender: FDA-Public Use
  Company Number: ZA-ROCHE-1153339

PATIENT
  Sex: Male

DRUGS (3)
  1. LUCENTIS [Suspect]
     Indication: MACULAR DEGENERATION
     Route: 050
     Dates: start: 20110317
  2. LUCENTIS [Suspect]
     Route: 050
     Dates: start: 20110414
  3. LUCENTIS [Suspect]
     Route: 050
     Dates: start: 20110512

REACTIONS (4)
  - Detachment of retinal pigment epithelium [Unknown]
  - Retinal detachment [Unknown]
  - Corneal lesion [Unknown]
  - Visual acuity reduced [Unknown]
